FAERS Safety Report 4772849-7 (Version None)
Quarter: 2005Q3

REPORT INFORMATION
  Report Type: 
  Country: None (occurrence: None)
  Receive Date: 20050919
  Receipt Date: 20050506
  Transmission Date: 20060218
  Serious: Yes (Hospitalization)
  Sender: FDA-Public Use
  Company Number: US-MERCK-0505USA00965

PATIENT
  Age: 60 Year
  Sex: Male
  Weight: 95 kg

DRUGS (9)
  1. VIOXX [Suspect]
     Indication: ARTHRALGIA
     Route: 048
     Dates: start: 19990801, end: 20021001
  2. COZAAR [Concomitant]
     Indication: HYPERTENSION
     Route: 048
     Dates: start: 20000101
  3. ASPIRIN [Concomitant]
     Route: 048
     Dates: start: 20000101
  4. NITROQUICK [Concomitant]
     Indication: ANGINA PECTORIS
     Route: 065
     Dates: start: 20000101, end: 20000101
  5. PRAVACHOL [Concomitant]
     Indication: HYPERLIPIDAEMIA
     Route: 048
     Dates: start: 19990101, end: 20000101
  6. ZOCOR [Concomitant]
     Indication: HYPERLIPIDAEMIA
     Route: 048
     Dates: start: 19960101
  7. ACETAMINOPHEN AND CODEINE [Suspect]
     Indication: ARTHRALGIA
     Route: 048
  8. DAYPRO [Suspect]
     Indication: ARTHRALGIA
     Route: 048
  9. RELAFEN [Suspect]
     Indication: ARTHRALGIA
     Route: 048

REACTIONS (14)
  - ARTHROPATHY [None]
  - ASTHMA [None]
  - BARRETT'S OESOPHAGUS [None]
  - BENIGN PROSTATIC HYPERPLASIA [None]
  - CORONARY ARTERY DISEASE [None]
  - DEPRESSION [None]
  - GASTRIC ULCER [None]
  - HAEMATOMA [None]
  - HERPES SIMPLEX [None]
  - INFLUENZA [None]
  - MUSCLE SPASMS [None]
  - PEPTIC ULCER [None]
  - POST PROCEDURAL COMPLICATION [None]
  - RASH [None]
